FAERS Safety Report 8592540-9 (Version None)
Quarter: 2012Q3

REPORT INFORMATION
  Report Type: 
  Country: None (occurrence: None)
  Receive Date: 20120814
  Receipt Date: 20120809
  Transmission Date: 20120928
  Serious: No
  Sender: FDA-Public Use
  Company Number: US-009507513-1208USA004645

PATIENT

DRUGS (1)
  1. ZETIA [Suspect]
     Dosage: 20 MG, BID
     Route: 048

REACTIONS (2)
  - OVERDOSE [None]
  - NO ADVERSE EVENT [None]
